FAERS Safety Report 9974430 (Version 1)
Quarter: 2014Q1

REPORT INFORMATION
  Report Type: Report from Study
  Country: US (occurrence: US)
  Receive Date: 20140306
  Receipt Date: 20140306
  Transmission Date: 20141002
  Serious: No
  Sender: FDA-Public Use
  Company Number: US-ABBVIE-13P-163-1156195-00

PATIENT
  Sex: Male

DRUGS (8)
  1. HUMIRA [Suspect]
     Indication: PSORIATIC ARTHROPATHY
  2. SERTRALINE [Concomitant]
     Indication: PSYCHOTIC DISORDER
     Dosage: 100 MG DAILY
  3. SERTRALINE [Concomitant]
     Indication: DEPRESSION
  4. SERTRALINE [Concomitant]
     Indication: BIPOLAR DISORDER
  5. GABAPENTIN [Concomitant]
     Indication: MOOD SWINGS
     Dosage: 2 TABS IN MORNING AND 4 TABS AT NIGHT
  6. KLONOPIN [Concomitant]
     Indication: MOOD SWINGS
     Dosage: 1 TAB IN MORNING AND 2 TABS AT NIGHT
  7. CLOBETASOL PROPIONATE CREAM 0.05% [Concomitant]
     Indication: DRY SKIN
  8. OMEPRAZOLE [Concomitant]
     Indication: GASTROOESOPHAGEAL REFLUX DISEASE

REACTIONS (1)
  - Psoriatic arthropathy [Not Recovered/Not Resolved]
